FAERS Safety Report 5046483-8 (Version None)
Quarter: 2006Q3

REPORT INFORMATION
  Report Type: 
  Country: None (occurrence: None)
  Receive Date: 20060706
  Receipt Date: 20060706
  Transmission Date: 20061208
  Serious: Yes (Other)
  Sender: FDA-Public Use
  Company Number: None

PATIENT
  Age: 35 Year
  Sex: Male
  Weight: 74.8435 kg

DRUGS (2)
  1. EFFEXOR [Suspect]
     Indication: BIPOLAR DISORDER
  2. EFFEXOR [Suspect]
     Indication: DEPRESSION

REACTIONS (7)
  - ABNORMAL BEHAVIOUR [None]
  - ACTIVITIES OF DAILY LIVING IMPAIRED [None]
  - ANGER [None]
  - DRUG WITHDRAWAL SYNDROME [None]
  - IMPAIRED DRIVING ABILITY [None]
  - NIGHTMARE [None]
  - OBSESSIVE-COMPULSIVE DISORDER [None]
